FAERS Safety Report 17096843 (Version 1)
Quarter: 2019Q4

REPORT INFORMATION
  Report Type: Spontaneous
  Country: US (occurrence: US)
  Receive Date: 20191102
  Receipt Date: 20191102
  Transmission Date: 20200122
  Serious: Yes (Hospitalization)
  Sender: FDA-Public Use
  Company Number: None

PATIENT
  Sex: Male

DRUGS (1)
  1. RIVAROXABAN [Suspect]
     Active Substance: RIVAROXABAN
     Indication: ATRIAL FIBRILLATION
     Route: 048
     Dates: start: 20190527, end: 20191019

REACTIONS (4)
  - Haemoptysis [None]
  - Epistaxis [None]
  - Anaemia [None]
  - Faeces discoloured [None]

NARRATIVE: CASE EVENT DATE: 20191013
